FAERS Safety Report 4808654-2 (Version None)
Quarter: 2005Q4

REPORT INFORMATION
  Report Type: 
  Country: None (occurrence: None)
  Receive Date: 20051025
  Receipt Date: 20051013
  Transmission Date: 20060501
  Serious: Yes (Other)
  Sender: FDA-Public Use
  Company Number: 2005AP05386

PATIENT
  Age: 76 Year
  Sex: Female

DRUGS (2)
  1. OMEPRAL [Suspect]
     Route: 048
     Dates: start: 20050621, end: 20050826
  2. ALLOPURINOL [Suspect]
     Route: 048
     Dates: start: 20050803, end: 20050826

REACTIONS (2)
  - NEUTROPHIL COUNT DECREASED [None]
  - WHITE BLOOD CELL COUNT DECREASED [None]
